FAERS Safety Report 9063034 (Version 1)
Quarter: 2013Q1

REPORT INFORMATION
  Report Type: Report from Study
  Country: US (occurrence: US)
  Receive Date: 20130131
  Receipt Date: 20130131
  Transmission Date: 20140127
  Serious: No
  Sender: FDA-Public Use
  Company Number: US-ABBOTT-12P-163-0987849-00

PATIENT
  Age: 58 Year
  Sex: Male

DRUGS (11)
  1. HUMIRA [Suspect]
     Indication: CROHN^S DISEASE
     Route: 058
     Dates: start: 201207, end: 20120924
  2. ASPIRIN [Concomitant]
     Indication: MYOCARDIAL INFARCTION
  3. INDERAL [Concomitant]
     Indication: HYPERTENSION
  4. DEXILANT [Concomitant]
     Indication: GASTROOESOPHAGEAL REFLUX DISEASE
  5. MAGNESIUM [Concomitant]
     Indication: NEPHROPATHY
  6. ZEMPLAR [Concomitant]
     Indication: NEPHROPATHY
     Dosage: FOUR DAYS OF THE WEEK
  7. LIPITOR [Concomitant]
     Indication: BLOOD CHOLESTEROL INCREASED
     Dosage: HALF TABLET
  8. XANAX [Concomitant]
     Indication: PRODUCT USED FOR UNKNOWN INDICATION
  9. TIGAN [Concomitant]
     Indication: NAUSEA
  10. OXYCODONE [Concomitant]
     Indication: CROHN^S DISEASE
  11. OXYCODONE [Concomitant]
     Dosage: 7.5/325 MG
     Dates: start: 20121203

REACTIONS (5)
  - Gastrointestinal inflammation [Not Recovered/Not Resolved]
  - Intestinal stenosis [Not Recovered/Not Resolved]
  - Gastrointestinal pain [Not Recovered/Not Resolved]
  - Gastrointestinal pain [Not Recovered/Not Resolved]
  - Drug dose omission [Unknown]
